FAERS Safety Report 4798275-2 (Version None)
Quarter: 2005Q4

REPORT INFORMATION
  Report Type: 
  Country: None (occurrence: None)
  Receive Date: 20051014
  Receipt Date: 20051004
  Transmission Date: 20060501
  Serious: Yes (Hospitalization)
  Sender: FDA-Public Use
  Company Number: PHRM2005FR02665

PATIENT
  Age: 79 Year
  Sex: Female

DRUGS (5)
  1. TAREG [Suspect]
     Route: 048
  2. LASILIX [Concomitant]
     Route: 048
  3. PREVISCAN [Concomitant]
     Route: 048
  4. VOLTARENE LP [Suspect]
     Route: 048
     Dates: start: 20050901
  5. TRAMADOL (MONOCRIXO LP) [Suspect]
     Dosage: UNK, UNK
     Route: 048
     Dates: start: 20050901

REACTIONS (2)
  - BLOOD PRESSURE INCREASED [None]
  - EXTRAPYRAMIDAL DISORDER [None]
